FAERS Safety Report 9579617 (Version 1)
Quarter: 2013Q4

REPORT INFORMATION
  Report Type: Spontaneous
  Country: US (occurrence: US)
  Receive Date: 20131002
  Receipt Date: 20131002
  Transmission Date: 20140711
  Serious: Yes (Other)
  Sender: FDA-Public Use
  Company Number: US-AMGEN-USASP2013068838

PATIENT
  Age: 3 Year
  Sex: Female

DRUGS (1)
  1. NEUPOGEN [Suspect]
     Indication: NEUTROPENIA
     Dosage: 60 MCG, UNK
     Route: 065

REACTIONS (3)
  - Hallucination, visual [Unknown]
  - Delusion [Unknown]
  - Confusional state [Unknown]
